FAERS Safety Report 4725730-3 (Version None)
Quarter: 2005Q3

REPORT INFORMATION
  Report Type: 
  Country: None (occurrence: None)
  Receive Date: 20050725
  Receipt Date: 20050714
  Transmission Date: 20060218
  Serious: Yes (Other)
  Sender: FDA-Public Use
  Company Number: 2005103415

PATIENT
  Age: 41 Year
  Sex: Female
  Weight: 79.3795 kg

DRUGS (3)
  1. ZOLOFT [Suspect]
     Indication: DEPRESSION
     Dosage: 150 MG (1 IN 1 D), ORAL
     Route: 048
     Dates: start: 20010101
  2. DILANTIN KAPSEAL [Suspect]
     Indication: CONVULSION PROPHYLAXIS
     Dosage: 300 MG (1 IN 1D)
     Dates: start: 20021001
  3. VITAMINS (VITAMINS) [Concomitant]

REACTIONS (3)
  - BRAIN NEOPLASM MALIGNANT [None]
  - DISEASE RECURRENCE [None]
  - WEIGHT DECREASED [None]
